FAERS Safety Report 24034821 (Version 5)
Quarter: 2024Q3

REPORT INFORMATION
  Report Type: Report from Study
  Country: ES (occurrence: ES)
  Receive Date: 20240701
  Receipt Date: 20240926
  Transmission Date: 20241017
  Serious: Yes (Hospitalization)
  Sender: PFIZER
  Company Number: ES-TAKEDA-2021TUS043329

PATIENT
  Age: 49 Year
  Sex: Female
  Weight: 56.3 kg

DRUGS (9)
  1. BRENTUXIMAB VEDOTIN [Suspect]
     Active Substance: BRENTUXIMAB VEDOTIN
     Indication: Hodgkin^s disease
     Dosage: 112 MILLIGRAM, Q3WEEKS
     Route: 042
     Dates: start: 20210601, end: 20210624
  2. BRENTUXIMAB VEDOTIN [Suspect]
     Active Substance: BRENTUXIMAB VEDOTIN
     Dosage: UNK
     Route: 042
     Dates: start: 20210719
  3. CYTARABINE [Suspect]
     Active Substance: CYTARABINE
     Indication: Hodgkin^s disease
     Dosage: 3100 MILLIGRAM, Q3WEEKS
     Route: 042
     Dates: start: 20210601, end: 20210628
  4. CISPLATIN [Suspect]
     Active Substance: CISPLATIN
     Indication: Hodgkin^s disease
     Dosage: 156 MILLIGRAM, Q3WEEKS
     Route: 042
     Dates: start: 20210601, end: 20210627
  5. METHYLPREDNISOLONE SODIUM SUCCINATE [Suspect]
     Active Substance: METHYLPREDNISOLONE SODIUM SUCCINATE
     Indication: Hodgkin^s disease
     Dosage: 1000 MILLIGRAM, Q3WEEKS
     Route: 042
     Dates: start: 20210601, end: 20210627
  6. ETOPOSIDE [Suspect]
     Active Substance: ETOPOSIDE
     Indication: Hodgkin^s disease
     Dosage: 248 MILLIGRAM, Q3WEEKS (INTRAVENOUS INFUSION)
     Route: 042
     Dates: start: 20210601, end: 20210627
  7. OMEPRAZOLE [Concomitant]
     Active Substance: OMEPRAZOLE
     Indication: Gastrointestinal disorder
     Dosage: 20 MILLIGRAM, QD
     Route: 048
  8. ACYCLOVIR [Concomitant]
     Active Substance: ACYCLOVIR
     Indication: Infection prophylaxis
     Dosage: 800 MILLIGRAM, QD
     Route: 048
     Dates: start: 20210626
  9. FILGRASTIM [Concomitant]
     Active Substance: FILGRASTIM
     Indication: Haematopoietic stem cell mobilisation
     Dosage: 300 MICROGRAM, Q12H
     Route: 058
     Dates: start: 20210629, end: 20210704

REACTIONS (1)
  - Septic shock [Recovered/Resolved]

NARRATIVE: CASE EVENT DATE: 20210704
